FAERS Safety Report 5115111-5 (Version None)
Quarter: 2006Q3

REPORT INFORMATION
  Report Type: 
  Country: None (occurrence: None)
  Receive Date: 20060925
  Receipt Date: 20060925
  Transmission Date: 20061208
  Serious: Yes (Other)
  Sender: FDA-Public Use
  Company Number: None

PATIENT

DRUGS (2)
  1. LEVAQUIN [Suspect]
     Indication: URINARY TRACT INFECTION
     Dosage: SEE IMAGE
     Route: 043
     Dates: start: 20060730, end: 20060801
  2. LEVAQUIN [Suspect]
     Indication: URINARY TRACT INFECTION
     Dosage: SEE IMAGE
     Route: 043
     Dates: start: 20060802, end: 20060808

REACTIONS (3)
  - DISCOMFORT [None]
  - FEELING ABNORMAL [None]
  - PAIN [None]
